FAERS Safety Report 22541726 (Version 1)
Quarter: 2023Q2

REPORT INFORMATION
  Report Type: Report from Study
  Country: US (occurrence: US)
  Receive Date: 20230609
  Receipt Date: 20230609
  Transmission Date: 20230721
  Serious: Yes (Other)
  Sender: FDA-Public Use
  Company Number: US-GILEAD-2023-0631027

PATIENT
  Age: 54 Year
  Sex: Female

DRUGS (1)
  1. SACITUZUMAB GOVITECAN-HZIY [Suspect]
     Active Substance: SACITUZUMAB GOVITECAN-HZIY
     Indication: Breast cancer
     Dosage: 720MG IV 21 DAY CYCLE DAYS 1 AND 8
     Route: 042
     Dates: start: 20230419

REACTIONS (2)
  - Anaemia [Unknown]
  - Cytopenia [Unknown]
